FAERS Safety Report 9805758 (Version 2)
Quarter: 2014Q1

REPORT INFORMATION
  Report Type: Spontaneous
  Country: US (occurrence: US)
  Receive Date: 20140109
  Receipt Date: 20140114
  Transmission Date: 20141002
  Serious: Yes (Death)
  Sender: FDA-Public Use
  Company Number: US-PFIZER INC-2014006015

PATIENT
  Age: 47 Year
  Sex: Male

DRUGS (4)
  1. AMIODARONE HCL [Suspect]
     Dosage: UNK
     Route: 048
  2. CARISOPRODOL [Suspect]
     Dosage: UNK
     Route: 048
  3. TRAMADOL [Suspect]
     Route: 048
  4. MEPROBAMATE [Suspect]
     Dosage: UNK

REACTIONS (3)
  - Completed suicide [Fatal]
  - Cardiac arrest [Fatal]
  - Respiratory arrest [Fatal]
